FAERS Safety Report 11672451 (Version 3)
Quarter: 2015Q4

REPORT INFORMATION
  Report Type: Spontaneous
  Country: US (occurrence: US)
  Receive Date: 20151027
  Receipt Date: 20151110
  Transmission Date: 20160304
  Serious: No
  Sender: FDA-Public Use
  Company Number: US-ELI_LILLY_AND_COMPANY-US201004005154

PATIENT
  Age: 67 Year
  Sex: Female

DRUGS (2)
  1. FORTEO [Suspect]
     Active Substance: TERIPARATIDE
     Dosage: 20 UG, DAILY (1/D)
     Dates: start: 20100602
  2. FORTEO [Suspect]
     Active Substance: TERIPARATIDE
     Indication: OSTEOPOROSIS
     Dosage: 20 UG, DAILY (1/D)
     Dates: start: 20100415, end: 20100509

REACTIONS (20)
  - Clumsiness [Not Recovered/Not Resolved]
  - Migraine [Unknown]
  - Somnolence [Unknown]
  - Contusion [Unknown]
  - Sleep disorder due to a general medical condition [Unknown]
  - Dizziness [Unknown]
  - Insomnia [Unknown]
  - Balance disorder [Unknown]
  - Injection site bruising [Unknown]
  - Feeling abnormal [Unknown]
  - Gastrointestinal disorder [Unknown]
  - Ear discomfort [Unknown]
  - Muscle spasms [Unknown]
  - Speech disorder [Unknown]
  - Decreased activity [Unknown]
  - Fatigue [Not Recovered/Not Resolved]
  - Fall [Unknown]
  - Contusion [Not Recovered/Not Resolved]
  - Pollakiuria [Unknown]
  - Malaise [Unknown]

NARRATIVE: CASE EVENT DATE: 20100416
